FAERS Safety Report 18241446 (Version 2)
Quarter: 2020Q3

REPORT INFORMATION
  Report Type: Spontaneous
  Country: IT (occurrence: IT)
  Receive Date: 20200908
  Receipt Date: 20200910
  Transmission Date: 20201103
  Serious: Yes (Other)
  Sender: FDA-Public Use
  Company Number: IT-ROCHE-2673235

PATIENT
  Sex: Female

DRUGS (4)
  1. RIVOTRIL [Suspect]
     Active Substance: CLONAZEPAM
     Dosage: 5 DROPS/DAY IN THE EVENING
     Route: 065
     Dates: start: 201901, end: 202001
  2. RIVOTRIL [Suspect]
     Active Substance: CLONAZEPAM
     Indication: SLEEP DISORDER
     Dosage: 10 DROPS/DAY IN THE EVENING
     Route: 065
     Dates: start: 201901, end: 202001
  3. LANSOPRAZOLE. [Concomitant]
     Active Substance: LANSOPRAZOLE
  4. CYMBALTA [Concomitant]
     Active Substance: DULOXETINE HYDROCHLORIDE

REACTIONS (5)
  - Depression [Unknown]
  - Intentional product use issue [Unknown]
  - Off label use [Unknown]
  - Suicidal ideation [Unknown]
  - Amnesia [Unknown]
